FAERS Safety Report 7953727-9 (Version None)
Quarter: 2011Q4

REPORT INFORMATION
  Report Type: 
  Country: None (occurrence: None)
  Receive Date: 20111202
  Receipt Date: 20111124
  Transmission Date: 20120403
  Serious: Yes (Other)
  Sender: FDA-Public Use
  Company Number: DE-JNJFOC-20111112241

PATIENT
  Sex: Female
  Weight: 69 kg

DRUGS (7)
  1. PALIPERIDONE [Suspect]
     Indication: HALLUCINATION, AUDITORY
     Route: 030
     Dates: start: 20111024
  2. PALIPERIDONE [Suspect]
     Indication: HALLUCINATION, VISUAL
     Route: 030
     Dates: start: 20111024
  3. PALIPERIDONE [Suspect]
     Indication: SCHIZOAFFECTIVE DISORDER
     Route: 030
     Dates: start: 20111024
  4. PROMETHAZINE HCL [Concomitant]
     Route: 065
  5. LORAZEPAM [Concomitant]
     Route: 065
  6. VALDOXAN (AGOMELATINE) [Concomitant]
     Route: 065
  7. ABILIFY [Concomitant]
     Route: 065

REACTIONS (1)
  - VASCULITIS [None]
